FAERS Safety Report 5907415-0 (Version None)
Quarter: 2008Q4

REPORT INFORMATION
  Report Type: 
  Country: None (occurrence: None)
  Receive Date: 20081003
  Receipt Date: 20080926
  Transmission Date: 20090506
  Serious: Yes (Hospitalization)
  Sender: FDA-Public Use
  Company Number: A0743650A

PATIENT
  Age: 41 Year
  Sex: Female

DRUGS (2)
  1. LAPATINIB [Suspect]
     Dosage: 1250MG PER DAY
     Route: 048
     Dates: start: 20080528
  2. CAPECITABINE [Suspect]
     Dosage: 2000MGM2 PER DAY
     Route: 048
     Dates: start: 20080801, end: 20080815

REACTIONS (4)
  - DEHYDRATION [None]
  - DISEASE PROGRESSION [None]
  - NAUSEA [None]
  - VOMITING [None]
